FAERS Safety Report 6128686-4 (Version None)
Quarter: 2009Q1

REPORT INFORMATION
  Report Type: 
  Country: None (occurrence: None)
  Receive Date: 20090323
  Receipt Date: 20090311
  Transmission Date: 20090719
  Serious: Yes (Life-Threatening)
  Sender: FDA-Public Use
  Company Number: CH-PFIZER INC-2009163171

PATIENT

DRUGS (2)
  1. AMLODIPINE BESYLATE [Suspect]
     Dosage: 5 MG, 1X/DAY
     Dates: start: 19950101, end: 20081218
  2. ACETYLSALICYLIC ACID [Concomitant]
     Dosage: UNK
     Dates: start: 20030101

REACTIONS (5)
  - ASTHMA [None]
  - ATRIAL FIBRILLATION [None]
  - CHRONIC SINUSITIS [None]
  - DYSPNOEA [None]
  - WEIGHT INCREASED [None]
